FAERS Safety Report 4902849-5 (Version None)
Quarter: 2006Q1

REPORT INFORMATION
  Report Type: 
  Country: None (occurrence: None)
  Receive Date: 20060207
  Receipt Date: 20010220
  Transmission Date: 20060701
  Serious: Yes (Hospitalization, Other)
  Sender: FDA-Public Use
  Company Number: UG-2001-BP-00750

PATIENT
  Age: 7 Day
  Sex: Female

DRUGS (4)
  1. NEVIRAPINE [Suspect]
     Indication: ACQUIRED IMMUNODEFICIENCY SYNDROME
     Route: 048
     Dates: start: 20010105, end: 20010109
  2. EMOLLENT CREAM [Concomitant]
  3. CHLOROMYCETHIN EYE OINTMENT [Concomitant]
     Route: 031
  4. VITAMIN K [Concomitant]

REACTIONS (8)
  - ACIDOSIS [None]
  - DIARRHOEA [None]
  - LEUKOPENIA [None]
  - LYMPHADENOPATHY [None]
  - NEUTROPENIA [None]
  - RASH ERYTHEMATOUS [None]
  - SEPSIS [None]
  - SKIN EXFOLIATION [None]
